FAERS Safety Report 22019041 (Version 1)
Quarter: 2023Q1

REPORT INFORMATION
  Report Type: Spontaneous
  Country: US (occurrence: None)
  Receive Date: 20230222
  Receipt Date: 20230222
  Transmission Date: 20230417
  Serious: Yes (Other)
  Sender: FDA-Public Use
  Company Number: 2023A038673

PATIENT
  Sex: Female
  Weight: 64.4 kg

DRUGS (4)
  1. SYMBICORT [Suspect]
     Active Substance: BUDESONIDE\FORMOTEROL FUMARATE DIHYDRATE
     Indication: Emphysema
     Dosage: 2 PUFFS TWICE DAILY
     Route: 055
  2. SYMBICORT [Suspect]
     Active Substance: BUDESONIDE\FORMOTEROL FUMARATE DIHYDRATE
     Indication: Chronic obstructive pulmonary disease
     Dosage: 2 PUFFS TWICE DAILY
     Route: 055
  3. BREZTRI [Suspect]
     Active Substance: BUDESONIDE\FORMOTEROL\GLYCOPYRROLATE
     Indication: Emphysema
     Dosage: 160/9/4.8MCG, 2 PUFFS TWICE DAILY,
     Route: 055
  4. BREZTRI [Suspect]
     Active Substance: BUDESONIDE\FORMOTEROL\GLYCOPYRROLATE
     Indication: Chronic obstructive pulmonary disease
     Dosage: 160/9/4.8MCG, 2 PUFFS TWICE DAILY,
     Route: 055

REACTIONS (12)
  - Oxygen saturation decreased [Unknown]
  - Memory impairment [Unknown]
  - Body height abnormal [Unknown]
  - Osteopenia [Unknown]
  - Osteoporosis [Unknown]
  - Product dose omission issue [Unknown]
  - Device use issue [Unknown]
  - Drug ineffective [Unknown]
  - Product taste abnormal [Unknown]
  - Device defective [Unknown]
  - Insurance issue [Unknown]
  - Incorrect dose administered [Unknown]

NARRATIVE: CASE EVENT DATE: 20170101
